FAERS Safety Report 24292040 (Version 1)
Quarter: 2024Q3

REPORT INFORMATION
  Report Type: Spontaneous
  Country: JP (occurrence: JP)
  Receive Date: 20240906
  Receipt Date: 20240906
  Transmission Date: 20241016
  Serious: Yes (Death, Hospitalization, Other)
  Sender: OTSUKA
  Company Number: JP-OTSUKA-2024_024527AA

PATIENT
  Age: 9 Decade
  Sex: Male
  Weight: 47.8 kg

DRUGS (4)
  1. SAMSCA [Suspect]
     Active Substance: TOLVAPTAN
     Indication: Cardiac failure chronic
     Dosage: 15MG
     Route: 048
     Dates: end: 202208
  2. FUROSEMIDE [Concomitant]
     Active Substance: FUROSEMIDE
     Indication: Product used for unknown indication
     Dosage: 40MG
     Route: 048
     Dates: end: 202208
  3. TORSEMIDE [Concomitant]
     Active Substance: TORSEMIDE
     Indication: Product used for unknown indication
     Dosage: 8MG
     Route: 048
     Dates: end: 202208
  4. DAPAGLIFLOZIN PROPANEDIOL [Concomitant]
     Active Substance: DAPAGLIFLOZIN PROPANEDIOL
     Indication: Product used for unknown indication
     Dosage: 10MG
     Route: 048
     Dates: end: 202208

REACTIONS (9)
  - Altered state of consciousness [Fatal]
  - Dyspnoea [Fatal]
  - Cardiac failure acute [Unknown]
  - Atrial fibrillation [Unknown]
  - Salt craving [Recovering/Resolving]
  - Bradycardia [Unknown]
  - Chronic kidney disease [Unknown]
  - Polydipsia [Recovering/Resolving]
  - Blood sodium increased [Unknown]

NARRATIVE: CASE EVENT DATE: 20220707
